FAERS Safety Report 10365005 (Version 2)
Quarter: 2014Q4

REPORT INFORMATION
  Report Type: Spontaneous
  Country: US (occurrence: None)
  Receive Date: 20140804
  Receipt Date: 20141027
  Transmission Date: 20150528
  Serious: Yes (Death, Other)
  Sender: FDA-Public Use
  Company Number: 2014-US-009374

PATIENT
  Age: 48 Year
  Sex: Male

DRUGS (1)
  1. XYREM [Suspect]
     Active Substance: SODIUM OXYBATE
     Indication: NARCOLEPSY
     Route: 048
     Dates: start: 201205, end: 2012

REACTIONS (3)
  - Depression [None]
  - Death [None]
  - Gun shot wound [None]

NARRATIVE: CASE EVENT DATE: 201404
